APPROVED DRUG PRODUCT: OFLOXACIN
Active Ingredient: OFLOXACIN
Strength: 200MG
Dosage Form/Route: TABLET;ORAL
Application: A076093 | Product #001
Applicant: CHARTWELL RX SCIENCES LLC
Approved: Sep 2, 2003 | RLD: No | RS: No | Type: DISCN